FAERS Safety Report 24658944 (Version 1)
Quarter: 2024Q4

REPORT INFORMATION
  Report Type: Spontaneous
  Country: US (occurrence: None)
  Receive Date: 20241122
  Receipt Date: 20241122
  Transmission Date: 20250115
  Serious: Yes (Other)
  Sender: Public
  Company Number: None

PATIENT
  Age: 48 Year
  Sex: Male
  Weight: 74.7 kg

DRUGS (1)
  1. GAMUNEX [Suspect]
     Active Substance: HUMAN IMMUNOGLOBULIN G
     Indication: Myasthenia gravis
     Dosage: OTHER FREQUENCY : Q 4 WEEKS;?
     Route: 042
     Dates: start: 20240709

REACTIONS (6)
  - Infusion related reaction [None]
  - Pruritus [None]
  - Paraesthesia [None]
  - Pruritus [None]
  - Malaise [None]
  - Product quality issue [None]

NARRATIVE: CASE EVENT DATE: 20241122
